FAERS Safety Report 15893016 (Version 1)
Quarter: 2019Q1

REPORT INFORMATION
  Report Type: Report from Study
  Country: US (occurrence: US)
  Receive Date: 20190130
  Receipt Date: 20190130
  Transmission Date: 20190417
  Serious: No
  Sender: FDA-Public Use
  Company Number: US-EXELIXIS-CABO-18015255

PATIENT
  Age: 73 Year
  Sex: Male

DRUGS (2)
  1. CABOMETYX [Suspect]
     Active Substance: CABOZANTINIB S-MALATE
     Indication: HEPATIC CANCER
     Dosage: 60 MG, QD
     Route: 048
     Dates: start: 20180713, end: 20180729
  2. CABOMETYX [Suspect]
     Active Substance: CABOZANTINIB S-MALATE
     Dosage: 40 MG, QD (AT NIGHT WITH WATER AND WITHOUT FOOD)
     Route: 048
     Dates: start: 2018

REACTIONS (4)
  - Blood pressure increased [Unknown]
  - Off label use [Unknown]
  - Palmar-plantar erythrodysaesthesia syndrome [Unknown]
  - Muscle spasms [Unknown]

NARRATIVE: CASE EVENT DATE: 201807
